FAERS Safety Report 6449365-X (Version None)
Quarter: 2009Q4

REPORT INFORMATION
  Report Type: 
  Country: None (occurrence: None)
  Receive Date: 20091120
  Receipt Date: 20090121
  Transmission Date: 20100525
  Serious: Yes (Other)
  Sender: FDA-Public Use
  Company Number: US-AMGEN-QUU315327

PATIENT
  Sex: Female

DRUGS (7)
  1. ENBREL [Suspect]
     Indication: PSORIASIS
     Route: 058
     Dates: start: 20031221
  2. ZOCOR [Concomitant]
  3. BENICAR [Concomitant]
  4. ALEVE [Concomitant]
  5. COENZYME Q10 [Concomitant]
  6. LOVAZA [Concomitant]
  7. ELOCON [Concomitant]

REACTIONS (8)
  - ABNORMAL FAECES [None]
  - ARTHRALGIA [None]
  - JOINT SWELLING [None]
  - PANCYTOPENIA [None]
  - PARAESTHESIA [None]
  - RASH [None]
  - RENAL CYST [None]
  - STRESS AT WORK [None]
